FAERS Safety Report 9640822 (Version 1)
Quarter: 2013Q4

REPORT INFORMATION
  Report Type: Report from Study
  Country: US (occurrence: US)
  Receive Date: 20131023
  Receipt Date: 20131023
  Transmission Date: 20140711
  Serious: No
  Sender: FDA-Public Use
  Company Number: US-ABBVIE-12P-163-1017456-00

PATIENT
  Age: 32 Year
  Sex: Female
  Weight: 84.44 kg

DRUGS (1)
  1. LUPRON DEPOT [Suspect]
     Indication: ENDOMETRIOSIS
     Dates: start: 201211

REACTIONS (1)
  - Hot flush [Not Recovered/Not Resolved]
